FAERS Safety Report 14348892 (Version 2)
Quarter: 2018Q1

REPORT INFORMATION
  Report Type: Spontaneous
  Country: JP (occurrence: JP)
  Receive Date: 20180104
  Receipt Date: 20180205
  Transmission Date: 20180509
  Serious: Yes (Other)
  Sender: FDA-Public Use
  Company Number: JP-ROCHE-2047538

PATIENT
  Age: 8 Decade
  Sex: Female

DRUGS (1)
  1. REMICADE [Suspect]
     Active Substance: INFLIXIMAB
     Indication: COLITIS ULCERATIVE
     Route: 041
     Dates: start: 20171120, end: 20171120

REACTIONS (3)
  - Neutrophil count decreased [Unknown]
  - White blood cell count decreased [Unknown]
  - Cytomegalovirus infection [Unknown]
